FAERS Safety Report 11971629 (Version 3)
Quarter: 2016Q1

REPORT INFORMATION
  Report Type: Spontaneous
  Country: US (occurrence: US)
  Receive Date: 20160128
  Receipt Date: 20160330
  Transmission Date: 20160526
  Serious: Yes (Other)
  Sender: FDA-Public Use
  Company Number: US-PFIZER INC-2016042923

PATIENT
  Age: 43 Year
  Sex: Male
  Weight: 61 kg

DRUGS (4)
  1. KEPPRA [Suspect]
     Active Substance: LEVETIRACETAM
     Indication: SEIZURE
     Dosage: 750MG ONE IN THE MORNING AND ONE AT NIGHT
  2. KEPPRA [Suspect]
     Active Substance: LEVETIRACETAM
     Dosage: 200 MG, 2X/DAY (2 IN THE MORNING AND 2 IN THE NIGHT)
  3. DILANTIN [Suspect]
     Active Substance: PHENYTOIN
     Indication: SEIZURE
     Dosage: 100MG TWO IN THE MORNING AND TWO AT NIGHT
  4. KEPPRA [Suspect]
     Active Substance: LEVETIRACETAM
     Dosage: 3 TIMES

REACTIONS (4)
  - Drug ineffective [Unknown]
  - Anticonvulsant drug level increased [Unknown]
  - Impaired driving ability [Unknown]
  - Injury [Unknown]

NARRATIVE: CASE EVENT DATE: 20151219
